FAERS Safety Report 18953056 (Version 1)
Quarter: 2021Q1

REPORT INFORMATION
  Report Type: Report from Study
  Country: None (occurrence: US)
  Receive Date: 20210301
  Receipt Date: 20210301
  Transmission Date: 20210420
  Serious: No
  Sender: FDA-Public Use
  Company Number: US-BIOVITRUM-2021US1841

PATIENT
  Age: 14 Year
  Sex: Female

DRUGS (1)
  1. KINERET [Suspect]
     Active Substance: ANAKINRA
     Indication: JUVENILE IDIOPATHIC ARTHRITIS
     Route: 058
     Dates: start: 20190328

REACTIONS (7)
  - Rash [Unknown]
  - Abdominal pain upper [Unknown]
  - Pyrexia [Unknown]
  - Arthralgia [Unknown]
  - Off label use [Unknown]
  - Gastroenteritis viral [Unknown]
  - Vomiting [Unknown]

NARRATIVE: CASE EVENT DATE: 20190328
